FAERS Safety Report 12211358 (Version 1)
Quarter: 2016Q1

REPORT INFORMATION
  Report Type: Spontaneous
  Country: US (occurrence: None)
  Receive Date: 20160324
  Receipt Date: 20160324
  Transmission Date: 20160526
  Serious: Yes (Hospitalization)
  Sender: FDA-Public Use
  Company Number: None

PATIENT
  Age: 33 Year
  Sex: Male

DRUGS (1)
  1. ENBREL [Suspect]
     Active Substance: ETANERCEPT
     Indication: ANKYLOSING SPONDYLITIS
     Route: 058
     Dates: start: 20160304, end: 20160319

REACTIONS (6)
  - Swollen tongue [None]
  - Joint swelling [None]
  - Dyspnoea [None]
  - Swelling face [None]
  - Vision blurred [None]
  - Drug hypersensitivity [None]
